FAERS Safety Report 19022361 (Version 1)
Quarter: 2021Q1

REPORT INFORMATION
  Report Type: Spontaneous
  Country: JP (occurrence: JP)
  Receive Date: 20210317
  Receipt Date: 20210317
  Transmission Date: 20210420
  Serious: Yes (Hospitalization)
  Sender: FDA-Public Use
  Company Number: JP-EISAI MEDICAL RESEARCH-EC-2021-089463

PATIENT
  Age: 82 Year
  Sex: Female
  Weight: 54 kg

DRUGS (10)
  1. LENVIMA [Suspect]
     Active Substance: LENVATINIB
     Route: 048
     Dates: start: 20170316
  2. LENVIMA [Suspect]
     Active Substance: LENVATINIB
     Dosage: ONE WEEK ON AND ONE WEEK OFF OR ONE WEEK ON AND TWO WEEKS OFF
     Route: 048
  3. LENVIMA [Suspect]
     Active Substance: LENVATINIB
     Dosage: ONE WEEK ON AND ONE WEEK OFF
     Route: 048
     Dates: start: 2018, end: 2018
  4. LENVIMA [Suspect]
     Active Substance: LENVATINIB
     Dosage: ONE WEEK ON/ONE WEEK OFF
     Route: 048
     Dates: end: 2018
  5. LENVIMA [Suspect]
     Active Substance: LENVATINIB
     Indication: ANAPLASTIC THYROID CANCER
     Route: 048
     Dates: start: 20170119, end: 20170125
  6. LENVIMA [Suspect]
     Active Substance: LENVATINIB
     Route: 048
     Dates: start: 20170302, end: 20170306
  7. LENVIMA [Suspect]
     Active Substance: LENVATINIB
     Route: 048
     Dates: start: 20170131, end: 20170207
  8. LENVIMA [Suspect]
     Active Substance: LENVATINIB
     Route: 048
     Dates: start: 20170214, end: 20170221
  9. LENVIMA [Suspect]
     Active Substance: LENVATINIB
     Dosage: 2 OR 3 TIMES A MONTH
     Route: 048
  10. LENVIMA [Suspect]
     Active Substance: LENVATINIB
     Dosage: ONE WEEK ON/TWO WEEKS OFF
     Route: 048
     Dates: start: 2018, end: 2018

REACTIONS (1)
  - Diverticulum intestinal haemorrhagic [Recovering/Resolving]

NARRATIVE: CASE EVENT DATE: 201806
